FAERS Safety Report 7727362-1 (Version None)
Quarter: 2011Q3

REPORT INFORMATION
  Report Type: 
  Country: None (occurrence: None)
  Receive Date: 20110902
  Receipt Date: 20110824
  Transmission Date: 20111222
  Serious: Yes (Other)
  Sender: FDA-Public Use
  Company Number: JP-GILEAD-2011-0043271

PATIENT
  Sex: Male

DRUGS (6)
  1. ADVATE [Concomitant]
     Dates: start: 20070407
  2. ENALAPRIL MALEATE [Concomitant]
     Dates: start: 20060401
  3. FAMOTIDINE [Concomitant]
     Dates: start: 19960401
  4. RECOMBINATE [Concomitant]
     Dates: start: 20060401, end: 20070406
  5. EFAVIRENZ [Suspect]
     Indication: HIV INFECTION
     Route: 048
     Dates: start: 20000901
  6. TRUVADA [Suspect]
     Indication: HIV INFECTION
     Route: 048
     Dates: start: 20060830

REACTIONS (1)
  - HEPATITIS C [None]
